FAERS Safety Report 18936185 (Version 2)
Quarter: 2021Q1

REPORT INFORMATION
  Report Type: Report from Study
  Country: US (occurrence: US)
  Receive Date: 20210224
  Receipt Date: 20210320
  Transmission Date: 20210420
  Serious: Yes (Hospitalization, Other)
  Sender: FDA-Public Use
  Company Number: US-TAKEDA-2021TUS010217

PATIENT
  Age: 65 Year
  Sex: Male
  Weight: 69 kg

DRUGS (10)
  1. HUMIRA [Concomitant]
     Active Substance: ADALIMUMAB
     Indication: PRODUCT USED FOR UNKNOWN INDICATION
     Route: 065
  2. TEDUGLUTIDE [Suspect]
     Active Substance: TEDUGLUTIDE
     Indication: GASTROINTESTINAL STOMA COMPLICATION
     Dosage: 1.725 MILLIGRAM, QD
     Route: 058
     Dates: start: 201810
  3. DAILY VITE [COLECALCIFEROL;CYANOCOBALAMIN;ERGOCALCIFEROL;NICOTINAMIDE; [Concomitant]
     Indication: PRODUCT USED FOR UNKNOWN INDICATION
     Route: 065
  4. TEDUGLUTIDE [Suspect]
     Active Substance: TEDUGLUTIDE
     Indication: GASTROINTESTINAL STOMA COMPLICATION
     Dosage: 1.725 MILLIGRAM, QD
     Route: 058
     Dates: start: 201810
  5. TEDUGLUTIDE [Suspect]
     Active Substance: TEDUGLUTIDE
     Indication: GASTROINTESTINAL STOMA COMPLICATION
     Dosage: 1.725 MILLIGRAM, QD
     Route: 058
     Dates: start: 201810
  6. TEDUGLUTIDE [Suspect]
     Active Substance: TEDUGLUTIDE
     Dosage: 5 MG/1.725 MILLIGRAM, QD
     Route: 058
     Dates: start: 201806
  7. TEDUGLUTIDE [Suspect]
     Active Substance: TEDUGLUTIDE
     Indication: GASTROINTESTINAL STOMA COMPLICATION
     Dosage: 1.725 MILLIGRAM, QD
     Route: 058
     Dates: start: 201810
  8. TEDUGLUTIDE [Suspect]
     Active Substance: TEDUGLUTIDE
     Dosage: 5 MG/1.725 MILLIGRAM, QD
     Route: 058
     Dates: start: 201806
  9. TEDUGLUTIDE [Suspect]
     Active Substance: TEDUGLUTIDE
     Dosage: 5 MG/1.725 MILLIGRAM, QD
     Route: 058
     Dates: start: 201806
  10. TEDUGLUTIDE [Suspect]
     Active Substance: TEDUGLUTIDE
     Dosage: 5 MG/1.725 MILLIGRAM, QD
     Route: 058
     Dates: start: 201806

REACTIONS (5)
  - Obstructive pancreatitis [Recovered/Resolved]
  - Therapy interrupted [Unknown]
  - Bile duct stone [Recovered/Resolved]
  - Product use in unapproved indication [Unknown]
  - Cholecystitis [Recovered/Resolved]

NARRATIVE: CASE EVENT DATE: 20210131
